FAERS Safety Report 6243051-7 (Version None)
Quarter: 2009Q2

REPORT INFORMATION
  Report Type: 
  Country: None (occurrence: None)
  Receive Date: 20090624
  Receipt Date: 20090612
  Transmission Date: 20091009
  Serious: Yes (Life-Threatening, Hospitalization)
  Sender: FDA-Public Use
  Company Number: CA-ELI_LILLY_AND_COMPANY-CA200904004571

PATIENT
  Age: 68 Year
  Sex: Female

DRUGS (2)
  1. CYMBALTA [Suspect]
     Dosage: 1 D/F, UNK
     Dates: start: 20080714, end: 20081014
  2. AVELOX [Concomitant]
     Indication: INFLUENZA

REACTIONS (5)
  - CIRCULATORY COLLAPSE [None]
  - CONTUSION [None]
  - DIZZINESS [None]
  - RASH [None]
  - URTICARIA [None]
